FAERS Safety Report 8795491 (Version 2)
Quarter: 2013Q1

REPORT INFORMATION
  Report Type: Spontaneous
  Country: US (occurrence: US)
  Receive Date: 20120917
  Receipt Date: 20130114
  Transmission Date: 20140127
  Serious: Yes (Death)
  Sender: FDA-Public Use
  Company Number: US-ROCHE-1129271

PATIENT
  Sex: Male

DRUGS (5)
  1. AVASTIN [Suspect]
     Indication: COLON CANCER
     Route: 042
     Dates: start: 20040310, end: 20040310
  2. OXALIPLATIN [Concomitant]
     Route: 065
  3. LEUCOVORIN [Concomitant]
     Route: 065
  4. 5-FU [Concomitant]
     Route: 042
  5. 5-FU [Concomitant]
     Route: 042

REACTIONS (1)
  - Colon cancer [Fatal]
